FAERS Safety Report 7853305-6 (Version None)
Quarter: 2011Q4

REPORT INFORMATION
  Report Type: 
  Country: None (occurrence: None)
  Receive Date: 20111026
  Receipt Date: 20111014
  Transmission Date: 20120403
  Serious: Yes (Hospitalization)
  Sender: FDA-Public Use
  Company Number: US-BAYER-2011-027228

PATIENT
  Age: 25 Year
  Sex: Female

DRUGS (5)
  1. LYRICA [Concomitant]
     Dosage: UNK
     Dates: start: 20070601, end: 20090101
  2. YAZ [Suspect]
     Indication: CONTRACEPTION
     Dosage: UNK
     Dates: start: 20070101, end: 20090101
  3. IBUPROFEN [Concomitant]
     Dosage: UNK
     Dates: start: 20010901
  4. LYRICA [Concomitant]
     Indication: FIBROMYALGIA
     Dosage: UNK
     Dates: start: 20060101
  5. ANTIBIOTICS [Concomitant]
     Dosage: UNK
     Dates: start: 20031201, end: 20100301

REACTIONS (9)
  - INJURY [None]
  - EMOTIONAL DISTRESS [None]
  - GALLBLADDER DISORDER [None]
  - VOMITING [None]
  - GENERAL PHYSICAL HEALTH DETERIORATION [None]
  - ANHEDONIA [None]
  - CHOLECYSTECTOMY [None]
  - ANXIETY [None]
  - PAIN [None]
